FAERS Safety Report 12179798 (Version 3)
Quarter: 2016Q2

REPORT INFORMATION
  Report Type: Spontaneous
  Country: AT (occurrence: AT)
  Receive Date: 20160315
  Receipt Date: 20160429
  Transmission Date: 20160815
  Serious: Yes (Hospitalization)
  Sender: FDA-Public Use
  Company Number: AT-EISAI MEDICAL RESEARCH-EC-2016-015178

PATIENT
  Age: 34 Year
  Sex: Female
  Weight: 60 kg

DRUGS (11)
  1. FYCOMPA [Suspect]
     Active Substance: PERAMPANEL
     Indication: TEMPORAL LOBE EPILEPSY
     Dosage: DOSE UNKNOWN WITH UP-TITRATION
     Route: 048
     Dates: end: 2015
  2. FYCOMPA [Suspect]
     Active Substance: PERAMPANEL
     Route: 048
     Dates: start: 201601
  3. KEPPRA [Suspect]
     Active Substance: LEVETIRACETAM
     Indication: TEMPORAL LOBE EPILEPSY
     Dosage: 1000 MG
     Route: 048
     Dates: end: 2015
  4. LAMICTAL [Suspect]
     Active Substance: LAMOTRIGINE
     Dosage: UNKNOWN (OVERDOSE)
     Dates: start: 201511, end: 201511
  5. VIMPAT [Suspect]
     Active Substance: LACOSAMIDE
     Indication: TEMPORAL LOBE EPILEPSY
     Route: 048
     Dates: end: 2015
  6. EPILA-D [Concomitant]
     Indication: TEMPORAL LOBE EPILEPSY
     Dosage: 200 MG
     Route: 048
     Dates: end: 201509
  7. FYCOMPA [Suspect]
     Active Substance: PERAMPANEL
     Dosage: DOSE UNKNOWN (OVERDOSE)
     Route: 048
     Dates: start: 201511, end: 201511
  8. KEPPRA [Suspect]
     Active Substance: LEVETIRACETAM
     Dosage: UNKNOWN (OVERDOSE)
     Dates: start: 201511, end: 201511
  9. LAMICTAL [Suspect]
     Active Substance: LAMOTRIGINE
     Indication: TEMPORAL LOBE EPILEPSY
     Route: 048
     Dates: end: 2015
  10. FYCOMPA [Suspect]
     Active Substance: PERAMPANEL
     Route: 048
     Dates: start: 20150915, end: 2015
  11. VIMPAT [Suspect]
     Active Substance: LACOSAMIDE
     Dosage: UNKNOWN (OVERDOSE)
     Dates: start: 201511, end: 201511

REACTIONS (3)
  - Suicide attempt [Recovered/Resolved]
  - Suicidal behaviour [Recovered/Resolved]
  - Intentional overdose [Recovered/Resolved]

NARRATIVE: CASE EVENT DATE: 201511
